FAERS Safety Report 8238711-2 (Version None)
Quarter: 2012Q1

REPORT INFORMATION
  Report Type: 
  Country: None (occurrence: None)
  Receive Date: 20120327
  Receipt Date: 20120316
  Transmission Date: 20120608
  Serious: Yes (Hospitalization)
  Sender: FDA-Public Use
  Company Number: DE-COVIDIEN/TYCO HEALTHCARE/MALLINCKRODT-T201201194

PATIENT
  Sex: Female

DRUGS (4)
  1. EXALGO [Suspect]
     Dosage: 8 MG, QD
     Route: 048
     Dates: start: 20111206, end: 20120109
  2. EXALGO [Suspect]
     Dosage: 4 MG, QD
     Route: 048
     Dates: start: 20111115, end: 20111205
  3. EXALGO [Suspect]
     Dosage: 16 MG, QD
     Route: 048
     Dates: start: 20120110, end: 20120206
  4. EXALGO [Suspect]
     Indication: OSTEOARTHRITIS
     Dosage: 32 MG, QD
     Route: 048
     Dates: start: 20120207

REACTIONS (4)
  - DRUG INEFFECTIVE [None]
  - HYPERHIDROSIS [None]
  - MYOCARDIAL INFARCTION [None]
  - VERTIGO [None]
